FAERS Safety Report 9472306 (Version 1)
Quarter: 2013Q3

REPORT INFORMATION
  Report Type: Spontaneous
  Country: FR (occurrence: FR)
  Receive Date: 20130823
  Receipt Date: 20130823
  Transmission Date: 20140515
  Serious: Yes (Hospitalization)
  Sender: FDA-Public Use
  Company Number: FR-JNJFOC-20130809306

PATIENT
  Age: 83 Year
  Sex: Female

DRUGS (14)
  1. DUROGESIC [Suspect]
     Indication: BACK PAIN
     Route: 062
     Dates: end: 20130513
  2. ZALDIAR [Suspect]
     Indication: BACK PAIN
     Dosage: DOSE: 37.5 MG/325 MG
     Route: 048
     Dates: end: 20130513
  3. BROMAZEPAM [Suspect]
     Indication: PRODUCT USED FOR UNKNOWN INDICATION
     Route: 048
     Dates: end: 20130513
  4. FLUOXETINE [Suspect]
     Indication: PRODUCT USED FOR UNKNOWN INDICATION
     Route: 048
     Dates: end: 20130513
  5. OMEPRAZOLE [Concomitant]
     Indication: PRODUCT USED FOR UNKNOWN INDICATION
     Dosage: LONG-TERM TREATMENT
     Route: 048
  6. DOLIPRANE [Concomitant]
     Indication: PRODUCT USED FOR UNKNOWN INDICATION
     Dosage: LONG-TERM TREATMENT
     Route: 048
  7. CALCIDOSE [Concomitant]
     Indication: PRODUCT USED FOR UNKNOWN INDICATION
     Dosage: LONG-TERM TREATMENT
     Route: 047
  8. KARDEGIC [Concomitant]
     Indication: PRODUCT USED FOR UNKNOWN INDICATION
     Dosage: LONG-TERM TREATMENT
     Route: 048
  9. LASILIX [Concomitant]
     Indication: PRODUCT USED FOR UNKNOWN INDICATION
     Dosage: 500 MG TABLET; 0.5 DOSE FORM PER DAY (LONG-TERM TREATMENT)
     Route: 048
  10. DIFFU K [Concomitant]
     Indication: PRODUCT USED FOR UNKNOWN INDICATION
     Dosage: LONG-TERM TREATMENT
     Route: 065
  11. CARDENSIEL [Concomitant]
     Indication: PRODUCT USED FOR UNKNOWN INDICATION
     Dosage: 5 MG TABLET; 1.5 DOSE FORM PER DAY (LONG-TERM TREATMENT)
     Route: 048
  12. RAMIPRIL [Concomitant]
     Indication: PRODUCT USED FOR UNKNOWN INDICATION
     Dosage: LONG-TERM TREATMENT
     Route: 048
  13. COUMADINE [Concomitant]
     Indication: PRODUCT USED FOR UNKNOWN INDICATION
     Dosage: DOSE DEPENDING ON INTERNATIONAL NORMALIZED RATIO (LONG-TERM TREATMENT)
     Route: 048
  14. ALLOPURINOL [Concomitant]
     Indication: PRODUCT USED FOR UNKNOWN INDICATION
     Dosage: LONG-TERM TREATMENT
     Route: 048

REACTIONS (8)
  - Fall [Recovered/Resolved]
  - Somnolence [Recovered/Resolved]
  - Psychomotor retardation [Unknown]
  - General physical health deterioration [Unknown]
  - Renal failure [Unknown]
  - Urinary retention [Unknown]
  - Urinary tract infection [Unknown]
  - Leukoencephalopathy [Unknown]
